FAERS Safety Report 5893417-X (Version None)
Quarter: 2008Q3

REPORT INFORMATION
  Report Type: 
  Country: None (occurrence: None)
  Receive Date: 20080922
  Receipt Date: 20080922
  Transmission Date: 20090109
  Serious: No
  Sender: FDA-Public Use
  Company Number: None

PATIENT
  Sex: Female
  Weight: 67.1324 kg

DRUGS (1)
  1. PAXIL [Suspect]

REACTIONS (3)
  - HYPERHIDROSIS [None]
  - ORAL HERPES [None]
  - WEIGHT INCREASED [None]
